FAERS Safety Report 6266368-9 (Version None)
Quarter: 2009Q3

REPORT INFORMATION
  Report Type: 
  Country: None (occurrence: None)
  Receive Date: 20090713
  Receipt Date: 20090702
  Transmission Date: 20100115
  Serious: Yes (Other)
  Sender: FDA-Public Use
  Company Number: PHHY2009GB21117

PATIENT
  Sex: Male

DRUGS (6)
  1. COMTESS [Suspect]
     Indication: PARKINSON'S DISEASE
     Dosage: 200 MG, QID
     Route: 048
     Dates: start: 20090424, end: 20090502
  2. MADOPAR [Concomitant]
     Dosage: 125 MG, QID
     Dates: start: 20060401
  3. MADOPAR CR [Concomitant]
     Dosage: 125 MG, QD
     Dates: start: 20060101
  4. PRAMIPEXOLE DIHYDROCHLORIDE [Concomitant]
     Dosage: 0.1 MG, TID
     Dates: start: 20050101
  5. LISINOPRIL [Concomitant]
     Dosage: 5 MG, QD
  6. DOMPERIDONE [Concomitant]
     Dosage: 10 MG

REACTIONS (4)
  - CONFUSIONAL STATE [None]
  - HALLUCINATION [None]
  - MORBID THOUGHTS [None]
  - UNEVALUABLE EVENT [None]
